FAERS Safety Report 5436785-5 (Version None)
Quarter: 2007Q3

REPORT INFORMATION
  Report Type: 
  Country: None (occurrence: None)
  Receive Date: 20070831
  Receipt Date: 20070821
  Transmission Date: 20080115
  Serious: No
  Sender: FDA-Public Use
  Company Number: A0672359A

PATIENT

DRUGS (3)
  1. ALLI [Suspect]
     Dates: start: 20070615
  2. POTASSIUM CHLORIDE [Concomitant]
  3. WATER PILL [Concomitant]

REACTIONS (1)
  - OEDEMA PERIPHERAL [None]
